FAERS Safety Report 16637494 (Version 2)
Quarter: 2019Q3

REPORT INFORMATION
  Report Type: Spontaneous
  Country: US (occurrence: US)
  Receive Date: 20190726
  Receipt Date: 20190820
  Transmission Date: 20191004
  Serious: Yes (Hospitalization)
  Sender: FDA-Public Use
  Company Number: US-JNJFOC-20190725561

PATIENT
  Sex: Female
  Weight: 65.83 kg

DRUGS (1)
  1. ULTRAM [Suspect]
     Active Substance: TRAMADOL HYDROCHLORIDE
     Indication: PAIN
     Route: 065
     Dates: start: 2012

REACTIONS (7)
  - Hospitalisation [Unknown]
  - Drug ineffective [Unknown]
  - Nerve compression [Unknown]
  - Migraine [Unknown]
  - Spinal operation [Unknown]
  - Sensory disturbance [Unknown]
  - Product dose omission [Unknown]

NARRATIVE: CASE EVENT DATE: 2014
